FAERS Safety Report 8452597-2 (Version None)
Quarter: 2012Q2

REPORT INFORMATION
  Report Type: 
  Country: None (occurrence: None)
  Receive Date: 20120620
  Receipt Date: 20120514
  Transmission Date: 20120825
  Serious: No
  Sender: FDA-Public Use
  Company Number: US-VERTEX PHARMACEUTICALS INC.-AE-2012-005641

PATIENT
  Sex: Male
  Weight: 113.5 kg

DRUGS (14)
  1. SOMA [Concomitant]
     Indication: MUSCLE TIGHTNESS
     Route: 048
  2. METFORMIN HCL [Concomitant]
     Route: 048
  3. CREON ENZYMES [Concomitant]
     Route: 048
  4. INCIVEK [Suspect]
     Indication: HEPATITIS C
     Route: 048
     Dates: start: 20120410
  5. PEGASYS [Concomitant]
     Indication: HEPATITIS C
     Route: 058
     Dates: start: 20120410
  6. AMLODIPINE [Concomitant]
     Route: 048
  7. PANTOPRAZOLE [Concomitant]
  8. DIAZEPAM [Concomitant]
     Indication: ANXIETY
     Route: 048
  9. PROTONIX [Concomitant]
     Indication: GASTROOESOPHAGEAL REFLUX DISEASE
     Route: 048
  10. LACTOLOSE [Concomitant]
     Indication: AMMONIA ABNORMAL
     Route: 048
  11. RIBAVIRIN [Concomitant]
     Indication: HEPATITIS C
     Route: 048
     Dates: start: 20120410
  12. OXYCODONE HCL [Concomitant]
     Indication: SPINAL COLUMN STENOSIS
     Route: 048
  13. XIFAXIN [Concomitant]
     Indication: HEPATIC ENCEPHALOPATHY
     Route: 048
  14. LEVOTHYROXINE SODIUM [Concomitant]
     Indication: HYPOTHYROIDISM
     Route: 048

REACTIONS (8)
  - PYREXIA [None]
  - INCORRECT DOSE ADMINISTERED [None]
  - RASH PRURITIC [None]
  - HEADACHE [None]
  - DIZZINESS [None]
  - INFLUENZA LIKE ILLNESS [None]
  - NAUSEA [None]
  - INAPPROPRIATE SCHEDULE OF DRUG ADMINISTRATION [None]
